FAERS Safety Report 14872880 (Version 1)
Quarter: 2018Q2

REPORT INFORMATION
  Report Type: Spontaneous
  Country: FR (occurrence: IT)
  Receive Date: 20180510
  Receipt Date: 20180510
  Transmission Date: 20180711
  Serious: Yes (Other)
  Sender: FDA-Public Use
  Company Number: FR-UCBSA-2016026260

PATIENT
  Age: 10 Year
  Sex: Female

DRUGS (3)
  1. KEPPRA [Suspect]
     Active Substance: LEVETIRACETAM
     Indication: SEIZURE
     Dosage: 200 MG, 2X/DAY (BID)
  2. KEPPRA [Suspect]
     Active Substance: LEVETIRACETAM
     Dosage: 800 MG DAILY DOSE
  3. KEPPRA [Suspect]
     Active Substance: LEVETIRACETAM
     Dosage: DOSE REDUCED TO 600 MG PER DAY

REACTIONS (1)
  - Osteochondrosis [Recovered/Resolved]
